FAERS Safety Report 14583021 (Version 1)
Quarter: 2018Q1

REPORT INFORMATION
  Report Type: Spontaneous
  Country: US (occurrence: US)
  Receive Date: 20180228
  Receipt Date: 20180228
  Transmission Date: 20180509
  Serious: Yes (Other)
  Sender: FDA-Public Use
  Company Number: US-BAYER-2018-038519

PATIENT
  Sex: Male

DRUGS (3)
  1. EPTIFIBATIDE. [Interacting]
     Active Substance: EPTIFIBATIDE
     Dosage: UNK
     Route: 042
  2. ACETYLSALICYLIC ACID({=100 MG) [Suspect]
     Active Substance: ASPIRIN
     Indication: ANTIPLATELET THERAPY
     Dosage: 81 MG, QD
  3. CLOPIDOGREL [Interacting]
     Active Substance: CLOPIDOGREL BISULFATE
     Indication: ANTIPLATELET THERAPY
     Dosage: 75 MG, QD

REACTIONS (3)
  - Labelled drug-drug interaction medication error [None]
  - Subarachnoid haemorrhage [None]
  - Drug administration error [None]
